FAERS Safety Report 9338546 (Version 1)
Quarter: 2013Q2

REPORT INFORMATION
  Report Type: Spontaneous
  Country: IE (occurrence: IE)
  Receive Date: 20130610
  Receipt Date: 20130610
  Transmission Date: 20140414
  Serious: Yes (Other)
  Sender: FDA-Public Use
  Company Number: IE-JNJFOC-20130602024

PATIENT
  Age: 65 Year
  Sex: Male

DRUGS (6)
  1. XARELTO [Suspect]
     Indication: ANTICOAGULANT THERAPY
     Route: 048
     Dates: start: 20121129, end: 20130517
  2. NEBILET [Concomitant]
     Dosage: 5 MG ,DAILY
     Route: 065
     Dates: start: 20110215, end: 20130517
  3. LOSEC [Concomitant]
     Indication: DYSPEPSIA
     Dosage: 20 MG DAILY
     Route: 065
     Dates: start: 20061212, end: 20130517
  4. ALDACTONE [Concomitant]
     Indication: DIURETIC THERAPY
     Dosage: 25MG,DAILY
     Route: 065
     Dates: start: 20100818, end: 20130517
  5. CRESTOR [Concomitant]
     Dosage: 10 MG DAILY
     Route: 065
     Dates: start: 20091013, end: 20130517
  6. TRITACE [Concomitant]
     Indication: HYPERTENSION
     Dosage: 5 MG, DAILY
     Route: 065
     Dates: start: 20061212, end: 20130517

REACTIONS (2)
  - Breast mass [Not Recovered/Not Resolved]
  - Breast pain [Not Recovered/Not Resolved]
